FAERS Safety Report 7749255-6 (Version None)
Quarter: 2011Q3

REPORT INFORMATION
  Report Type: 
  Country: None (occurrence: None)
  Receive Date: 20110914
  Receipt Date: 20110909
  Transmission Date: 20111222
  Serious: Yes (Death)
  Sender: FDA-Public Use
  Company Number: MA-PFIZER INC-2011212050

PATIENT
  Age: 12 Year
  Sex: Female

DRUGS (2)
  1. GENOTROPIN [Suspect]
     Indication: GROWTH HORMONE DEFICIENCY
     Dosage: 0.7 MG, 1X/DAY
     Route: 058
  2. PREDNISOLONE [Concomitant]
     Indication: JUVENILE ARTHRITIS

REACTIONS (1)
  - GENERAL PHYSICAL HEALTH DETERIORATION [None]
